FAERS Safety Report 21797023 (Version 2)
Quarter: 2023Q1

REPORT INFORMATION
  Report Type: Spontaneous
  Country: TH (occurrence: TH)
  Receive Date: 20221230
  Receipt Date: 20230109
  Transmission Date: 20230417
  Serious: Yes (Death, Hospitalization, Other)
  Sender: FDA-Public Use
  Company Number: TH-BAYER-2022P032764

PATIENT
  Age: 13 Day
  Sex: Male
  Weight: 2 kg

DRUGS (5)
  1. ILOPROST [Suspect]
     Active Substance: ILOPROST
     Indication: Pulmonary arterial hypertension
     Dosage: UNK  (28000NG + NSS 12ML IN DRIP 0,2ML/HR)
     Route: 042
     Dates: start: 20221220, end: 20221225
  2. ILOPROST [Suspect]
     Active Substance: ILOPROST
     Route: 055
     Dates: start: 20221225, end: 20221226
  3. ILOPROST [Suspect]
     Active Substance: ILOPROST
     Indication: Pulmonary arterial hypertension
     Dosage: UNK (28000NG + NSS 12ML IN DRIP 0,2ML/HR)
     Route: 042
     Dates: start: 20221217, end: 20221219
  4. DOPAMINE [Concomitant]
     Active Substance: DOPAMINE HYDROCHLORIDE
  5. DOBUTAMINE [Concomitant]
     Active Substance: DOBUTAMINE HYDROCHLORIDE

REACTIONS (5)
  - Death [Fatal]
  - Pulmonary hypertension [Unknown]
  - Incorrect route of product administration [Unknown]
  - Off label use [Unknown]
  - Product dispensing error [Unknown]
